FAERS Safety Report 15861925 (Version 2)
Quarter: 2019Q1

REPORT INFORMATION
  Report Type: Spontaneous
  Country: US (occurrence: US)
  Receive Date: 20190124
  Receipt Date: 20190130
  Transmission Date: 20190417
  Serious: No
  Sender: FDA-Public Use
  Company Number: US-PFIZER INC-2019027462

PATIENT
  Sex: Male

DRUGS (1)
  1. LYRICA CR [Suspect]
     Active Substance: PREGABALIN
     Dosage: 165 MG, DAILY (165MG/DAY)

REACTIONS (4)
  - Muscular weakness [Unknown]
  - Dysstasia [Unknown]
  - Back pain [Unknown]
  - Pain in extremity [Unknown]
